FAERS Safety Report 19476645 (Version 2)
Quarter: 2021Q3

REPORT INFORMATION
  Report Type: Spontaneous
  Country: CN (occurrence: CN)
  Receive Date: 20210630
  Receipt Date: 20210802
  Transmission Date: 20211014
  Serious: Yes (Hospitalization, Other)
  Sender: FDA-Public Use
  Company Number: CN-ACCORD-229386

PATIENT
  Age: 42 Year
  Sex: Male

DRUGS (6)
  1. DOCETAXEL. [Suspect]
     Active Substance: DOCETAXEL
     Indication: ADENOCARCINOMA GASTRIC
     Dosage: DOCETAXEL WAS INTRAVENOUSLY DRIP 400 MG/M2 PLUS NORMAL SALINE, REPEAT ONCE EVERY 2 WEEKS
     Route: 041
     Dates: start: 20200110
  2. DOCETAXEL. [Suspect]
     Active Substance: DOCETAXEL
     Indication: ADENOCARCINOMA GASTRIC
     Dosage: DOCETAXEL WAS INTRAVENOUSLY DRIP 400 MG/M2 PLUS NORMAL SALINE, REPEAT ONCE EVERY 2 WEEKS
     Route: 041
     Dates: start: 201909
  3. LOBAPLATIN [Suspect]
     Active Substance: LOBAPLATIN
     Indication: ADENOCARCINOMA GASTRIC
     Dosage: LOBAPLATIN WAS INTRAVENOUSLY DRIP 100 MG/M2 PLUS 5% GLUCOSE FOR 2 HOURS
     Route: 041
     Dates: start: 201909
  4. LOBAPLATIN [Suspect]
     Active Substance: LOBAPLATIN
     Indication: ADENOCARCINOMA GASTRIC
     Dosage: LOBAPLATIN WAS INTRAVENOUSLY DRIP 100 MG/M2 PLUS 5% GLUCOSE FOR 2 HOURS
     Route: 041
     Dates: start: 20200110
  5. GLUCOSE/GLUCOSE MONOHYDRATE/GLUCOSE OXIDASE [Concomitant]
     Active Substance: DEXTROSE
     Dosage: LOBAPLATIN WAS INTRAVENOUSLY DRIP 100 MG/M2 PLUS 5% GLUCOSE FOR 2 HOURS
     Route: 041
  6. BORIC ACID [Concomitant]
     Active Substance: BORIC ACID
     Dosage: DOCETAXEL WAS INTRAVENOUSLY DRIP 400 MG/M2 PLUS NORMAL SALINE, REPEAT ONCE EVERY TWO WEEKS

REACTIONS (5)
  - Nausea [Unknown]
  - Vomiting [Unknown]
  - Pyrexia [Unknown]
  - COVID-19 [Recovered/Resolved]
  - Decreased appetite [Unknown]

NARRATIVE: CASE EVENT DATE: 20200222
